FAERS Safety Report 8538901-5 (Version None)
Quarter: 2012Q3

REPORT INFORMATION
  Report Type: 
  Country: None (occurrence: None)
  Receive Date: 20120726
  Receipt Date: 20120716
  Transmission Date: 20120928
  Serious: Yes (Congenital Anomaly)
  Sender: FDA-Public Use
  Company Number: US-JNJFOC-20120709381

PATIENT

DRUGS (1)
  1. ERYTHROMYCIN [Suspect]
     Indication: FOETAL EXPOSURE DURING PREGNANCY
     Route: 064

REACTIONS (21)
  - CONGENITAL CENTRAL NERVOUS SYSTEM ANOMALY [None]
  - MICROCEPHALY [None]
  - DYSMORPHISM [None]
  - PULMONARY VALVE STENOSIS [None]
  - POLYDACTYLY [None]
  - ATRIAL SEPTAL DEFECT [None]
  - LIMB MALFORMATION [None]
  - GASTROINTESTINAL MALFORMATION [None]
  - ENCEPHALOCELE [None]
  - FOETAL MALFORMATION [None]
  - CONGENITAL CARDIOVASCULAR ANOMALY [None]
  - VENTRICULAR SEPTAL DEFECT [None]
  - CONGENITAL MUSCULOSKELETAL ANOMALY [None]
  - SPINA BIFIDA [None]
  - KIDNEY MALFORMATION [None]
  - SKULL MALFORMATION [None]
  - PATENT DUCTUS ARTERIOSUS [None]
  - UROGENITAL DISORDER [None]
  - PYLORIC STENOSIS [None]
  - INTESTINAL ATRESIA [None]
  - HYDROCEPHALUS [None]
